FAERS Safety Report 5828693-2 (Version None)
Quarter: 2008Q3

REPORT INFORMATION
  Report Type: 
  Country: None (occurrence: None)
  Receive Date: 20080729
  Receipt Date: 20080714
  Transmission Date: 20090109
  Serious: Yes (Other)
  Sender: FDA-Public Use
  Company Number: 2008S1012356

PATIENT
  Age: 27 Year
  Sex: Female

DRUGS (4)
  1. METFORMIN HCL [Suspect]
     Indication: POLYCYSTIC OVARIES
     Dosage: 500 MG; TABLET;ORAL;  DAILY;  500 MG;TWICE A DAY, ORAL
     Route: 048
     Dates: start: 20071201, end: 20080630
  2. METFORMIN HCL [Suspect]
     Indication: POLYCYSTIC OVARIES
     Dosage: 500 MG; TABLET;ORAL;  DAILY;  500 MG;TWICE A DAY, ORAL
     Route: 048
     Dates: start: 20080701
  3. FLUVOXAMINE MALEATE [Concomitant]
  4. LAMITRIN (LAMOTRIGINE) [Concomitant]

REACTIONS (9)
  - ABDOMINAL TENDERNESS [None]
  - CONTUSION [None]
  - GENERALISED ERYTHEMA [None]
  - LOSS OF CONSCIOUSNESS [None]
  - NYSTAGMUS [None]
  - OCULAR HYPERAEMIA [None]
  - SYNCOPE [None]
  - TREATMENT NONCOMPLIANCE [None]
  - WEIGHT DECREASED [None]
